FAERS Safety Report 18531838 (Version 2)
Quarter: 2021Q2

REPORT INFORMATION
  Report Type: Spontaneous
  Country: US (occurrence: US)
  Receive Date: 20201123
  Receipt Date: 20210527
  Transmission Date: 20210717
  Serious: No
  Sender: FDA-Public Use
  Company Number: US-CIPLA LTD.-2020US06779

PATIENT

DRUGS (4)
  1. DICLOFENAC [Suspect]
     Active Substance: DICLOFENAC
     Indication: ARTHRITIS
  2. DICLOFENAC [Suspect]
     Active Substance: DICLOFENAC
     Indication: SPONDYLITIS
  3. ACCUPRIL [Concomitant]
     Active Substance: QUINAPRIL HYDROCHLORIDE
     Indication: HYPERTENSION
     Dosage: 40 MILLIGRAM, QD
     Route: 065
  4. DICLOFENAC [Suspect]
     Active Substance: DICLOFENAC
     Indication: PAIN
     Dosage: UNK
     Route: 061
     Dates: start: 20200910

REACTIONS (11)
  - Drug hypersensitivity [Unknown]
  - Reaction to excipient [Unknown]
  - Product odour abnormal [Unknown]
  - Product substitution issue [Unknown]
  - Pharyngitis [Unknown]
  - Product use in unapproved indication [Not Recovered/Not Resolved]
  - Headache [Unknown]
  - Wheezing [Not Recovered/Not Resolved]
  - Cough [Not Recovered/Not Resolved]
  - Illness [Unknown]
  - Off label use [Not Recovered/Not Resolved]

NARRATIVE: CASE EVENT DATE: 20200910
